FAERS Safety Report 9943286 (Version 1)
Quarter: 2014Q1

REPORT INFORMATION
  Report Type: Spontaneous
  Country: US (occurrence: US)
  Receive Date: 20140303
  Receipt Date: 20140303
  Transmission Date: 20141002
  Serious: Yes (Hospitalization)
  Sender: FDA-Public Use
  Company Number: US-TEVA-465011USA

PATIENT
  Age: 68 Year
  Sex: Female
  Weight: 110.32 kg

DRUGS (5)
  1. PROAIR HFA [Suspect]
     Indication: ASTHMA
     Dosage: 2 PUFFS EVERY 4 HOURS ALTERNATING WITH BREATHING TREATMENT
  2. ALBUTEROL [Concomitant]
     Indication: RESPIRATORY DISORDER
  3. ATROVENT [Concomitant]
     Indication: RESPIRATORY DISORDER
  4. SYMBICORT [Concomitant]
     Indication: RESPIRATORY DISORDER
  5. PSYCHOTIC MEDICATIONS [Concomitant]
     Indication: PSYCHOTIC DISORDER

REACTIONS (4)
  - Dyspnoea [Unknown]
  - Psychotic disorder [Unknown]
  - Drug ineffective [Not Recovered/Not Resolved]
  - Wheezing [Not Recovered/Not Resolved]
